FAERS Safety Report 7399813-6 (Version None)
Quarter: 2011Q2

REPORT INFORMATION
  Report Type: 
  Country: None (occurrence: None)
  Receive Date: 20110407
  Receipt Date: 20110405
  Transmission Date: 20111010
  Serious: Yes (Other)
  Sender: FDA-Public Use
  Company Number: US-ROCHE-769344

PATIENT
  Sex: Male

DRUGS (2)
  1. ACCUTANE [Suspect]
     Route: 065
     Dates: start: 19860801, end: 19861001
  2. ACCUTANE [Suspect]
     Route: 065
     Dates: start: 19880601, end: 19881101

REACTIONS (1)
  - INJURY [None]
